FAERS Safety Report 17505075 (Version 1)
Quarter: 2020Q1

REPORT INFORMATION
  Report Type: Spontaneous
  Country: US (occurrence: US)
  Receive Date: 20200305
  Receipt Date: 20200305
  Transmission Date: 20200409
  Serious: No
  Sender: FDA-Public Use
  Company Number: NVSC2020US062787

PATIENT
  Sex: Female

DRUGS (1)
  1. RECLAST [Suspect]
     Active Substance: ZOLEDRONIC ACID
     Indication: METASTASES TO BONE
     Route: 065

REACTIONS (7)
  - Hypertonic bladder [Unknown]
  - Asthenia [Unknown]
  - Fear [Unknown]
  - Jaw disorder [Unknown]
  - Toothache [Unknown]
  - Arthralgia [Unknown]
  - Injection site pain [Unknown]
